FAERS Safety Report 6447438-9 (Version None)
Quarter: 2009Q4

REPORT INFORMATION
  Report Type: 
  Country: None (occurrence: None)
  Receive Date: 20091119
  Receipt Date: 20091109
  Transmission Date: 20100525
  Serious: Yes (Hospitalization)
  Sender: FDA-Public Use
  Company Number: GR-ABBOTT-09P-066-0607567-00

PATIENT
  Age: 80 Year
  Sex: Male
  Weight: 67 kg

DRUGS (17)
  1. ZEMPLAR [Suspect]
     Indication: HYPERPARATHYROIDISM SECONDARY
     Route: 042
     Dates: start: 20091104
  2. ADALAT CC [Concomitant]
     Indication: DRUG USE FOR UNKNOWN INDICATION
  3. LOPRESSOR [Concomitant]
     Indication: DRUG USE FOR UNKNOWN INDICATION
  4. TTS NITRONG [Concomitant]
     Indication: DRUG USE FOR UNKNOWN INDICATION
     Dosage: 5 MILLIGRAMS ONCE DAILY TTS
  5. RENAGEL [Concomitant]
     Indication: DRUG USE FOR UNKNOWN INDICATION
  6. FORSENOL [Concomitant]
     Indication: DRUG USE FOR UNKNOWN INDICATION
  7. OMACOR [Concomitant]
     Indication: DRUG USE FOR UNKNOWN INDICATION
  8. LEPUR [Concomitant]
     Indication: DRUG USE FOR UNKNOWN INDICATION
  9. FILICINE [Concomitant]
     Indication: DRUG USE FOR UNKNOWN INDICATION
  10. LOFTYL [Concomitant]
     Indication: DRUG USE FOR UNKNOWN INDICATION
  11. REVOTONINE [Concomitant]
     Indication: DRUG USE FOR UNKNOWN INDICATION
  12. NOOTROP SR [Concomitant]
     Indication: DRUG USE FOR UNKNOWN INDICATION
  13. LOSEC CPS [Concomitant]
     Indication: DRUG USE FOR UNKNOWN INDICATION
  14. DIOVAN [Concomitant]
     Indication: DRUG USE FOR UNKNOWN INDICATION
     Dates: start: 20091104
  15. IVOR [Concomitant]
     Indication: DRUG USE FOR UNKNOWN INDICATION
     Dosage: 2500
  16. SUPERAMINE [Concomitant]
     Indication: DRUG USE FOR UNKNOWN INDICATION
  17. BIOTINE [Concomitant]
     Indication: DRUG USE FOR UNKNOWN INDICATION

REACTIONS (2)
  - FALL [None]
  - HIP FRACTURE [None]
